FAERS Safety Report 4316827-0 (Version None)
Quarter: 2004Q1

REPORT INFORMATION
  Report Type: 
  Country: None (occurrence: None)
  Receive Date: 20040308
  Receipt Date: 20040130
  Transmission Date: 20041129
  Serious: No
  Sender: FDA-Public Use
  Company Number: PHEH2004US01429

PATIENT
  Sex: Male

DRUGS (1)
  1. GLEEVEC [Suspect]
     Indication: CHRONIC MYELOID LEUKAEMIA
     Dosage: 400 MG, QD
     Dates: start: 20030101

REACTIONS (4)
  - BLOOD CHOLESTEROL [None]
  - SCLERAL DISCOLOURATION [None]
  - SCLERAL OEDEMA [None]
  - VISUAL DISTURBANCE [None]
